FAERS Safety Report 9187982 (Version 2)
Quarter: 2019Q4

REPORT INFORMATION
  Report Type: Spontaneous
  Country: BR (occurrence: BR)
  Receive Date: 20130325
  Receipt Date: 20191029
  Transmission Date: 20200122
  Serious: Yes (Death, Other)
  Sender: FDA-Public Use
  Company Number: BR-BIOMARINAP-BR-2013-100544

PATIENT

DRUGS (2)
  1. NAGLAZYME [Suspect]
     Active Substance: GALSULFASE
     Dosage: 15 MILLIGRAM, QW
     Route: 042
     Dates: start: 20100623, end: 20121219
  2. NAGLAZYME [Suspect]
     Active Substance: GALSULFASE
     Indication: MUCOPOLYSACCHARIDOSIS VI
     Dosage: 15 MILLIGRAM, QW
     Route: 042
     Dates: start: 20130123

REACTIONS (19)
  - Tricuspid valve incompetence [Unknown]
  - Granuloma [Unknown]
  - Mitral valve incompetence [Unknown]
  - Neurofibroma [Unknown]
  - Infection [Unknown]
  - Bone deformity [Unknown]
  - Spinal deformity [Unknown]
  - Aortic dilatation [Unknown]
  - Cardiac septal hypertrophy [Unknown]
  - Sleep apnoea syndrome [Unknown]
  - Oxygen saturation decreased [Unknown]
  - Pneumonia [Fatal]
  - Snoring [Unknown]
  - Upper respiratory tract infection [Unknown]
  - Inguinal hernia [Unknown]
  - Osteopenia [Unknown]
  - Nasal turbinate hypertrophy [Unknown]
  - Bone lesion [Unknown]
  - Kyphosis [Unknown]
